FAERS Safety Report 24859589 (Version 1)
Quarter: 2025Q1

REPORT INFORMATION
  Report Type: Spontaneous
  Country: BG (occurrence: BG)
  Receive Date: 20250119
  Receipt Date: 20250119
  Transmission Date: 20250409
  Serious: Yes (Death)
  Sender: CHIESI
  Company Number: BG-CHIESI-2025CHF00259

PATIENT
  Age: 9 Year
  Sex: Male

DRUGS (1)
  1. FILSUVEZ [Suspect]
     Active Substance: BIRCH TRITERPENES
     Indication: Epidermolysis bullosa
     Dates: start: 202309

REACTIONS (2)
  - Death [Fatal]
  - Wound infection [Unknown]
